FAERS Safety Report 16404442 (Version 1)
Quarter: 2019Q2

REPORT INFORMATION
  Report Type: Spontaneous
  Country: US (occurrence: US)
  Receive Date: 20190607
  Receipt Date: 20190607
  Transmission Date: 20190711
  Serious: No
  Sender: FDA-Public Use
  Company Number: US-PFIZER INC-2016584860

PATIENT
  Age: 78 Year
  Sex: Male

DRUGS (3)
  1. NITROSTAT [Suspect]
     Active Substance: NITROGLYCERIN
     Indication: CORONARY ARTERY DISEASE
  2. NITROSTAT [Suspect]
     Active Substance: NITROGLYCERIN
     Indication: MYOCARDIAL INFARCTION
  3. NITROSTAT [Suspect]
     Active Substance: NITROGLYCERIN
     Indication: CHEST PAIN
     Dosage: 0.4 MG, AS NEEDED (1 TABLET EVERY 5 MINUTES)
     Route: 060
     Dates: start: 20161208

REACTIONS (2)
  - Dyspnoea [Unknown]
  - Tooth disorder [Unknown]
